FAERS Safety Report 7498905-0 (Version None)
Quarter: 2011Q2

REPORT INFORMATION
  Report Type: 
  Country: None (occurrence: None)
  Receive Date: 20110524
  Receipt Date: 20110519
  Transmission Date: 20111010
  Serious: Yes (Death, Life-Threatening)
  Sender: FDA-Public Use
  Company Number: US-ASTRAZENECA-2011SE30899

PATIENT
  Age: 75 Year
  Sex: Male

DRUGS (2)
  1. UNSPECIFIED PRODUCT [Suspect]
     Route: 065
  2. CRESTOR [Suspect]
     Route: 048

REACTIONS (2)
  - DRUG HYPERSENSITIVITY [None]
  - COMA [None]
